FAERS Safety Report 5522979-7 (Version None)
Quarter: 2007Q4

REPORT INFORMATION
  Report Type: 
  Country: None (occurrence: None)
  Receive Date: 20071121
  Receipt Date: 20071113
  Transmission Date: 20080405
  Serious: Yes (Hospitalization)
  Sender: FDA-Public Use
  Company Number: PHBS2007JP18708

PATIENT
  Sex: Female

DRUGS (3)
  1. TEGRETOL [Suspect]
     Dosage: 400 MG, BID
     Route: 048
     Dates: start: 20071030, end: 20071101
  2. TEGRETOL [Suspect]
     Dosage: 400 MG, QD
     Route: 048
     Dates: start: 20071105
  3. ADALAT [Concomitant]
     Dosage: 20 MG, UNK
     Route: 048

REACTIONS (3)
  - DIZZINESS [None]
  - NYSTAGMUS [None]
  - VOMITING [None]
